FAERS Safety Report 8543281-5 (Version None)
Quarter: 2012Q3

REPORT INFORMATION
  Report Type: 
  Country: None (occurrence: None)
  Receive Date: 20120727
  Receipt Date: 20120720
  Transmission Date: 20120928
  Serious: Yes (Hospitalization, Other)
  Sender: FDA-Public Use
  Company Number: US-CELGENEUS-163-21880-12072530

PATIENT
  Sex: Male
  Weight: 115.77 kg

DRUGS (1)
  1. REVLIMID [Suspect]
     Indication: MULTIPLE MYELOMA
     Dosage: 10 MILLIGRAM
     Route: 048
     Dates: start: 20120716

REACTIONS (5)
  - NERVOUS SYSTEM DISORDER [None]
  - PRURITUS [None]
  - PROTEIN TOTAL INCREASED [None]
  - PAIN IN EXTREMITY [None]
  - FULL BLOOD COUNT DECREASED [None]
